FAERS Safety Report 7004907-0 (Version None)
Quarter: 2010Q3

REPORT INFORMATION
  Report Type: 
  Country: None (occurrence: None)
  Receive Date: 20100921
  Receipt Date: 20100909
  Transmission Date: 20110219
  Serious: Yes (Life-Threatening, Other)
  Sender: FDA-Public Use
  Company Number: US-SANOFI-AVENTIS-2010SA054781

PATIENT
  Age: 82 Year
  Sex: Female
  Weight: 40.83 kg

DRUGS (6)
  1. PLAVIX [Suspect]
     Dates: start: 20100801
  2. COUMADIN [Suspect]
     Dates: start: 20100401
  3. COUMADIN [Suspect]
     Dates: start: 20100801
  4. ASPIRIN [Suspect]
     Dates: start: 20100801
  5. DRONEDARONE HCL [Concomitant]
     Dates: start: 20100801
  6. PRAVASTATIN [Concomitant]

REACTIONS (2)
  - ARRHYTHMIA [None]
  - HAEMORRHAGE [None]
